FAERS Safety Report 7125647-3 (Version None)
Quarter: 2010Q4

REPORT INFORMATION
  Report Type: 
  Country: None (occurrence: None)
  Receive Date: 20101129
  Receipt Date: 20101116
  Transmission Date: 20110411
  Serious: Yes (Hospitalization)
  Sender: FDA-Public Use
  Company Number: FR-JNJFOC-20101106444

PATIENT
  Sex: Female

DRUGS (8)
  1. DURAGESIC-100 [Suspect]
     Indication: ILL-DEFINED DISORDER
     Dosage: 50X2 + 12.5
     Route: 062
  2. ACTISKENAN [Suspect]
     Indication: ILL-DEFINED DISORDER
     Route: 048
  3. SOLUPRED [Concomitant]
     Route: 048
  4. FUROSEMIDE [Concomitant]
     Route: 048
  5. DIFFU K [Concomitant]
     Route: 065
  6. CACIT VITAMINE D3 [Concomitant]
     Route: 048
  7. FORLAX [Concomitant]
     Route: 048
  8. SERESTA [Concomitant]
     Dosage: 10 MG : 1/2 PER DAY
     Route: 048

REACTIONS (2)
  - CONSTIPATION [None]
  - INTESTINAL OBSTRUCTION [None]
